FAERS Safety Report 7357434-5 (Version None)
Quarter: 2011Q1

REPORT INFORMATION
  Report Type: 
  Country: None (occurrence: None)
  Receive Date: 20110309
  Receipt Date: 20110222
  Transmission Date: 20110831
  Serious: Yes (Hospitalization)
  Sender: FDA-Public Use
  Company Number: THQ2011A01107

PATIENT
  Age: 44 Year
  Sex: Female

DRUGS (8)
  1. SIMVASTATIN [Concomitant]
  2. EFFEXOR [Concomitant]
  3. SELOKEN ZOC (METOPROLOL SUCCINATE) [Concomitant]
  4. ACTOS [Suspect]
     Indication: DIABETES MELLITUS
     Dosage: 15, 30  MG (15 MG, 1 IN 1 D), ORAL
     Route: 048
     Dates: start: 20100919, end: 20101215
  5. ACTOS [Suspect]
     Indication: DIABETES MELLITUS
     Dosage: 15, 30  MG (15 MG, 1 IN 1 D), ORAL
     Route: 048
     Dates: start: 20101216
  6. DIFORMIN RETARD (METFORMIN HYDROCHLORIDE) [Concomitant]
  7. ENALAPRIL RATIOPHARM (ENALAPRIL MALEATE) [Concomitant]
  8. FURESIS (FUROSEMIDE) [Concomitant]

REACTIONS (4)
  - ECZEMA [None]
  - BLOOD PRESSURE INCREASED [None]
  - NO THERAPEUTIC RESPONSE [None]
  - HYPERSENSITIVITY [None]
